FAERS Safety Report 9586987 (Version 2)
Quarter: 2013Q4

REPORT INFORMATION
  Report Type: Spontaneous
  Country: CA (occurrence: CA)
  Receive Date: 20131003
  Receipt Date: 20131025
  Transmission Date: 20140711
  Serious: Yes (Other)
  Sender: FDA-Public Use
  Company Number: CA-ASTRAZENECA-2013SE72095

PATIENT
  Age: 61 Year
  Sex: Female
  Weight: 54.4 kg

DRUGS (5)
  1. SYMBICORT TURBUHALER [Suspect]
     Indication: ASTHMA
     Dosage: 800 MCG, 2 PUFFS BID
     Route: 055
     Dates: start: 20120515
  2. SYMBICORT TURBUHALER [Suspect]
     Indication: ASTHMA
     Dosage: 200/6 MCG, 2 PUFFS BID
     Route: 055
  3. VITAMIN B12 [Concomitant]
  4. CALCIUM [Concomitant]
  5. VENTOLIN HFA [Concomitant]
     Dosage: 2 PUFFS QLD PM

REACTIONS (2)
  - Dyspnoea [Recovered/Resolved]
  - Gait disturbance [Recovered/Resolved]
